FAERS Safety Report 8883660 (Version 2)
Quarter: 2012Q4

REPORT INFORMATION
  Report Type: 
  Country: PE (occurrence: PE)
  Receive Date: 20121102
  Receipt Date: 20121129
  Transmission Date: 20130627
  Serious: Yes (Other)
  Sender: FDA-Public Use
  Company Number: PE-PFIZER INC-2012268159

PATIENT
  Age: 83 Year
  Sex: Female

DRUGS (1)
  1. XALATAN [Suspect]
     Indication: GLAUCOMA
     Dosage: 1.5 ug, UNK
     Route: 047
     Dates: end: 201209

REACTIONS (2)
  - Glaucoma [Not Recovered/Not Resolved]
  - Ulcer [Not Recovered/Not Resolved]
